FAERS Safety Report 5893337-0 (Version None)
Quarter: 2008Q3

REPORT INFORMATION
  Report Type: 
  Country: None (occurrence: None)
  Receive Date: 20080923
  Receipt Date: 20080917
  Transmission Date: 20090109
  Serious: Yes (Hospitalization)
  Sender: FDA-Public Use
  Company Number: BR-ASTRAZENECA-2008UW19415

PATIENT
  Age: 67 Year
  Sex: Male
  Weight: 80 kg

DRUGS (9)
  1. ZOLADEX [Suspect]
     Indication: PROSTATIC SPECIFIC ANTIGEN INCREASED
     Route: 058
     Dates: start: 20080301
  2. MONOCORDIL [Concomitant]
  3. LASIX [Concomitant]
  4. LOSARTANA [Concomitant]
  5. SIMVASTATINA [Concomitant]
     Indication: HYPERCHOLESTEROLAEMIA
  6. BAMIFIX [Concomitant]
     Indication: BRONCHITIS
  7. ALDACTONE [Concomitant]
     Indication: DIURETIC THERAPY
  8. TAMPONATE ASA [Concomitant]
  9. NAO SABE [Concomitant]
     Indication: ANTICOAGULANT THERAPY
     Dates: start: 20010101

REACTIONS (1)
  - ULCER HAEMORRHAGE [None]
